FAERS Safety Report 25027691 (Version 1)
Quarter: 2025Q1

REPORT INFORMATION
  Report Type: Spontaneous
  Country: US (occurrence: US)
  Receive Date: 20250301
  Receipt Date: 20250301
  Transmission Date: 20250408
  Serious: No
  Sender: SANOFI AVENTIS
  Company Number: US-SA-2025SA057440

PATIENT
  Age: 49 Year
  Sex: Female

DRUGS (15)
  1. DUPIXENT [Suspect]
     Active Substance: DUPILUMAB
     Indication: Asthma
     Route: 058
  2. DUPIXENT [Suspect]
     Active Substance: DUPILUMAB
     Dosage: 300 MG, QOW
     Route: 058
  3. ADVAIR HFA [Concomitant]
     Active Substance: FLUTICASONE PROPIONATE\SALMETEROL XINAFOATE
  4. AMLODIPINE [Concomitant]
     Active Substance: AMLODIPINE BESYLATE
  5. AZELASTINE [Concomitant]
     Active Substance: AZELASTINE
  6. DOXYCYCLINE [Concomitant]
     Active Substance: DOXYCYCLINE
  7. GABAPENTIN [Concomitant]
     Active Substance: GABAPENTIN
  8. HYDROCHLOROTHIAZIDE [Concomitant]
     Active Substance: HYDROCHLOROTHIAZIDE
  9. HYDROXYZINE HYDROCHLORIDE [Concomitant]
     Active Substance: HYDROXYZINE HYDROCHLORIDE
  10. ALBUTEROL\IPRATROPIUM [Concomitant]
     Active Substance: ALBUTEROL\IPRATROPIUM
  11. LORATADINE [Concomitant]
     Active Substance: LORATADINE
  12. LUBIPROSTONE [Concomitant]
     Active Substance: LUBIPROSTONE
  13. MONTELUKAST [Concomitant]
     Active Substance: MONTELUKAST
  14. OMEPRAZOLE [Concomitant]
     Active Substance: OMEPRAZOLE
  15. PANTOPRAZOLE SODIUM [Concomitant]
     Active Substance: PANTOPRAZOLE SODIUM

REACTIONS (3)
  - Influenza [Unknown]
  - Psychomotor hyperactivity [Unknown]
  - Hysterectomy [Unknown]
